FAERS Safety Report 7462040-8 (Version None)
Quarter: 2011Q2

REPORT INFORMATION
  Report Type: 
  Country: None (occurrence: None)
  Receive Date: 20110506
  Receipt Date: 20090930
  Transmission Date: 20111010
  Serious: Yes (Other)
  Sender: FDA-Public Use
  Company Number: US-BAYER-2011-005987

PATIENT
  Age: 71 Year
  Sex: Male
  Weight: 111.5 kg

DRUGS (30)
  1. LISINOPRIL [Concomitant]
     Indication: PRODUCT USED FOR UNKNOWN INDICATION
     Dosage: 20 MG, QD
     Route: 048
  2. TECHNETIUM TC-99M [Concomitant]
     Dosage: 15.1 MCI, UNK
  3. TYLENOL W/ CODEINE [Concomitant]
     Dosage: UNK UNK, PRN
     Route: 048
  4. LISINOPRIL [Concomitant]
     Dosage: 10 MG, QD
     Route: 048
  5. AMIODARONE [Concomitant]
  6. CARDIZEM [Concomitant]
  7. PLAVIX [Concomitant]
     Dosage: DAILY
     Route: 048
  8. LASIX [Concomitant]
     Indication: PRODUCT USED FOR UNKNOWN INDICATION
     Dosage: 20 MG, UNK
     Route: 042
  9. HYDROCHLOROTHIAZIDE [Concomitant]
     Dosage: 12.5 MG, QD
     Route: 048
  10. DIOVAN [Concomitant]
     Indication: PRODUCT USED FOR UNKNOWN INDICATION
     Dosage: 160 MG, QD
     Route: 048
  11. PROTAMINE SULFATE [Concomitant]
     Indication: PRODUCT USED FOR UNKNOWN INDICATION
     Dosage: UNK
     Route: 042
  12. HEPARIN [Concomitant]
     Indication: PRODUCT USED FOR UNKNOWN INDICATION
     Dosage: 10000 U, UNK
     Route: 042
  13. MANNITOL [Concomitant]
     Indication: PRODUCT USED FOR UNKNOWN INDICATION
     Dosage: 100 ML, UNK
     Route: 042
     Dates: start: 20081208
  14. CRYSTALOID [Concomitant]
     Indication: PRODUCT USED FOR UNKNOWN INDICATION
     Dosage: 1700 ML, UNK
     Dates: start: 20081208
  15. ADENOSINE [Concomitant]
  16. DOPAMINE HCL [Concomitant]
  17. AVANDIA [Concomitant]
     Dosage: 4 MG, BID
     Route: 048
  18. COREG [Concomitant]
     Dosage: 2.5 MG, BID
     Route: 048
  19. ANCEF [Concomitant]
     Indication: PRODUCT USED FOR UNKNOWN INDICATION
     Dosage: 2 G, UNK
     Route: 042
  20. CIPRO [Concomitant]
     Dosage: 500 MG, BID
     Route: 048
  21. VERSED [Concomitant]
     Indication: PRODUCT USED FOR UNKNOWN INDICATION
     Dosage: 15 UNK, UNK
     Route: 042
  22. SUFENTANIL [Concomitant]
     Indication: PRODUCT USED FOR UNKNOWN INDICATION
     Dosage: UNK
     Route: 042
     Dates: start: 20081208
  23. VISIPAQUE [Concomitant]
     Indication: CATHETERISATION CARDIAC
     Dosage: 104.0 ML, UNK
     Dates: start: 20051107
  24. LOPRESSOR [Concomitant]
  25. HUMULIN N [Concomitant]
     Dosage: 12 U, BID
  26. TRASYLOL [Suspect]
     Indication: CORONARY ARTERY BYPASS
     Dosage: 200 ML
     Route: 042
     Dates: start: 20051208, end: 20051208
  27. CALCIUM CHLORIDE [Concomitant]
     Indication: PRODUCT USED FOR UNKNOWN INDICATION
     Dosage: 1 G, UNK
  28. CARDIOPLEGIA [Concomitant]
     Indication: PRODUCT USED FOR UNKNOWN INDICATION
     Dosage: 300 ML, UNK
     Dates: start: 20081208, end: 20081208
  29. TECHNETIUM TC-99M [Concomitant]
     Indication: SCAN MYOCARDIAL PERFUSION
     Dosage: 46.6 MCI, UNK
     Dates: start: 20051018
  30. HUMALOG [Concomitant]
     Dosage: 8 U, BID

REACTIONS (14)
  - DEPRESSION [None]
  - ANHEDONIA [None]
  - FEAR OF DEATH [None]
  - RENAL FAILURE [None]
  - MULTI-ORGAN FAILURE [None]
  - ANXIETY [None]
  - FEAR [None]
  - PAIN [None]
  - RENAL INJURY [None]
  - UNEVALUABLE EVENT [None]
  - EMOTIONAL DISTRESS [None]
  - TRAUMATIC LUNG INJURY [None]
  - INJURY [None]
  - NERVOUSNESS [None]
